FAERS Safety Report 23313705 (Version 1)
Quarter: 2023Q4

REPORT INFORMATION
  Report Type: Spontaneous
  Country: US (occurrence: None)
  Receive Date: 20231219
  Receipt Date: 20231219
  Transmission Date: 20240110
  Serious: Yes (Other)
  Sender: FDA-Public Use
  Company Number: None

PATIENT
  Age: 48 Year
  Sex: Female

DRUGS (1)
  1. CYMBALTA [Suspect]
     Active Substance: DULOXETINE HYDROCHLORIDE

REACTIONS (11)
  - Drug dependence [None]
  - Withdrawal syndrome [None]
  - Electric shock sensation [None]
  - Gastrointestinal disorder [None]
  - Irritability [None]
  - Anxiety [None]
  - Depression [None]
  - Emotional disorder [None]
  - Mental disorder [None]
  - Emotional distress [None]
  - Adverse drug reaction [None]

NARRATIVE: CASE EVENT DATE: 20231219
